FAERS Safety Report 7240259-9 (Version None)
Quarter: 2011Q1

REPORT INFORMATION
  Report Type: 
  Country: None (occurrence: None)
  Receive Date: 20110124
  Receipt Date: 20110112
  Transmission Date: 20110831
  Serious: Yes (Other)
  Sender: FDA-Public Use
  Company Number: DE-PFIZER INC-2010167582

PATIENT
  Age: 75 Year
  Sex: Male

DRUGS (1)
  1. XALATAN [Suspect]
     Indication: INTRAOCULAR PRESSURE INCREASED
     Dosage: 1 DROP BILATERALLY AT NIGHT
     Dates: start: 20090601

REACTIONS (4)
  - RETINAL DISORDER [None]
  - SCOTOMA [None]
  - METAMORPHOPSIA [None]
  - RETINAL OEDEMA [None]
